FAERS Safety Report 5005832-7 (Version None)
Quarter: 2006Q2

REPORT INFORMATION
  Report Type: 
  Country: None (occurrence: None)
  Receive Date: 20060515
  Receipt Date: 20060504
  Transmission Date: 20061013
  Serious: Yes (Other)
  Sender: FDA-Public Use
  Company Number: SUS1-2006-00479

PATIENT
  Sex: Male

DRUGS (1)
  1. ADDERALL 10 [Suspect]
     Indication: DRUG ABUSER
     Dosage: 10 MG,

REACTIONS (6)
  - AGGRESSION [None]
  - DRUG ABUSER [None]
  - HYPERSOMNIA [None]
  - INSOMNIA [None]
  - VERBAL ABUSE [None]
  - WEIGHT DECREASED [None]
